FAERS Safety Report 13151450 (Version 1)
Quarter: 2017Q1

REPORT INFORMATION
  Report Type: Spontaneous
  Country: US (occurrence: US)
  Receive Date: 20170125
  Receipt Date: 20170125
  Transmission Date: 20170428
  Serious: No
  Sender: FDA-Public Use
  Company Number: US-KADMON PHARMACEUTICALS, LLC-KAD201606-002306

PATIENT
  Age: 63 Year
  Sex: Male
  Weight: 63.05 kg

DRUGS (2)
  1. RIBAVIRIN 200 MG TABLETS [Suspect]
     Active Substance: RIBAVIRIN
     Indication: HEPATITIS C
     Route: 048
     Dates: start: 20160220
  2. VIEKIRA PAK [Suspect]
     Active Substance: DASABUVIR\OMBITASVIR\PARITAPREVIR\RITONAVIR
     Indication: HEPATITIS C
     Dosage: TABLET
     Route: 048
     Dates: start: 20160220

REACTIONS (4)
  - Decreased appetite [Unknown]
  - Pain in extremity [Unknown]
  - Dyspepsia [Unknown]
  - Hiccups [Unknown]

NARRATIVE: CASE EVENT DATE: 20160531
